FAERS Safety Report 6773611-6 (Version None)
Quarter: 2010Q2

REPORT INFORMATION
  Report Type: 
  Country: None (occurrence: None)
  Receive Date: 20100614
  Receipt Date: 20100603
  Transmission Date: 20101027
  Serious: Yes (Death, Hospitalization, Other)
  Sender: FDA-Public Use
  Company Number: POMP-1000663

PATIENT
  Age: 23 Month
  Sex: Female
  Weight: 12.5 kg

DRUGS (1)
  1. MYOZYME [Suspect]
     Indication: GLYCOGEN STORAGE DISEASE TYPE II
     Dosage: 20 MG/KG, Q2W, INTRAVENOUS
     Route: 042
     Dates: start: 20080117

REACTIONS (18)
  - BLOOD IMMUNOGLOBULIN G INCREASED [None]
  - CEREBRAL ATROPHY [None]
  - DISEASE COMPLICATION [None]
  - DRUG INEFFECTIVE [None]
  - DYSMYELINATION [None]
  - DYSPNOEA [None]
  - GLYCOGEN STORAGE DISEASE TYPE II [None]
  - HYPERCAPNIA [None]
  - HYPOXIA [None]
  - INFUSION RELATED REACTION [None]
  - IRRITABILITY [None]
  - MUSCULAR WEAKNESS [None]
  - PERIPHERAL MOTOR NEUROPATHY [None]
  - PYREXIA [None]
  - RESPIRATORY DISTRESS [None]
  - RESPIRATORY FAILURE [None]
  - VIRAL UPPER RESPIRATORY TRACT INFECTION [None]
  - VOMITING [None]
